FAERS Safety Report 10735082 (Version 1)
Quarter: 2015Q1

REPORT INFORMATION
  Report Type: Spontaneous
  Country: US (occurrence: US)
  Receive Date: 20150124
  Receipt Date: 20150124
  Transmission Date: 20150721
  Serious: Yes (Hospitalization, Other)
  Sender: FDA-Public Use
  Company Number: US-ABBVIE-15K-163-1334946-00

PATIENT
  Sex: Male
  Weight: 68.1 kg

DRUGS (5)
  1. METHOTREXATE [Suspect]
     Active Substance: METHOTREXATE
     Indication: PRODUCT USED FOR UNKNOWN INDICATION
     Route: 065
  2. TRAMADOL [Concomitant]
     Active Substance: TRAMADOL
     Indication: PRODUCT USED FOR UNKNOWN INDICATION
  3. ASPIRIN. [Concomitant]
     Active Substance: ASPIRIN
     Indication: PRODUCT USED FOR UNKNOWN INDICATION
  4. HUMIRA [Suspect]
     Active Substance: ADALIMUMAB
     Indication: RHEUMATOID ARTHRITIS
     Route: 065
     Dates: start: 2012
  5. HUMIRA [Suspect]
     Active Substance: ADALIMUMAB
     Dosage: 6 MONTHS LATER
     Route: 065
     Dates: end: 20130722

REACTIONS (7)
  - Rheumatoid arthritis [Recovered/Resolved]
  - Disability [Not Recovered/Not Resolved]
  - Drug effect decreased [Recovered/Resolved]
  - Poor peripheral circulation [Not Recovered/Not Resolved]
  - Peripheral vascular disorder [Recovering/Resolving]
  - Infection [Recovering/Resolving]
  - Wound [Unknown]

NARRATIVE: CASE EVENT DATE: 2013
